FAERS Safety Report 8899583 (Version 1)
Quarter: 2012Q4

REPORT INFORMATION
  Report Type: 
  Country: US (occurrence: US)
  Receive Date: 20121108
  Receipt Date: 20121108
  Transmission Date: 20130627
  Serious: No
  Sender: FDA-Public Use
  Company Number: US-AMGEN-USASP2012032366

PATIENT
  Sex: Male

DRUGS (8)
  1. ENBREL [Suspect]
     Indication: RHEUMATOID ARTHRITIS
     Dosage: 50 mg, qwk
  2. ENBREL [Suspect]
     Indication: PSORIATIC ARTHROPATHY
  3. METHOTREXATE [Concomitant]
  4. FOLIC ACID [Concomitant]
  5. LORAZEPAM [Concomitant]
  6. CELEXA                             /00582602/ [Concomitant]
  7. ALPRAZOLAM [Concomitant]
  8. VENTOLIN                           /00139501/ [Concomitant]

REACTIONS (1)
  - Injection site pain [Unknown]
